FAERS Safety Report 4353070-3 (Version None)
Quarter: 2004Q2

REPORT INFORMATION
  Report Type: 
  Country: None (occurrence: None)
  Receive Date: 20040429
  Receipt Date: 20040419
  Transmission Date: 20050107
  Serious: Yes (Hospitalization)
  Sender: FDA-Public Use
  Company Number: 2004210278FR

PATIENT
  Age: 57 Year
  Sex: Male
  Weight: 68 kg

DRUGS (4)
  1. ZYVOX [Suspect]
     Indication: STAPHYLOCOCCAL INFECTION
     Dosage: 600 MG, BID
     Dates: start: 20040106, end: 20040127
  2. VFEND [Suspect]
     Indication: FUNGAL INFECTION
     Dosage: SEE IMAGE
     Dates: end: 20040203
  3. VFEND [Suspect]
     Indication: FUNGAL INFECTION
     Dosage: SEE IMAGE
     Dates: start: 20031231
  4. CASPOFUNGIN [Concomitant]

REACTIONS (5)
  - CHOLELITHIASIS [None]
  - CHOLESTASIS [None]
  - CYTOLYTIC HEPATITIS [None]
  - HEPATITIS [None]
  - HEPATOMEGALY [None]
